FAERS Safety Report 23888852 (Version 1)
Quarter: 2024Q2

REPORT INFORMATION
  Report Type: Spontaneous
  Country: US (occurrence: None)
  Receive Date: 20240522
  Receipt Date: 20240522
  Transmission Date: 20240716
  Serious: Yes (Death)
  Sender: FDA-Public Use
  Company Number: None

PATIENT
  Age: 77 Year
  Sex: Female

DRUGS (1)
  1. BELATACEPT [Suspect]
     Active Substance: BELATACEPT
     Indication: Renal transplant
     Dates: start: 20221030

REACTIONS (14)
  - Post transplant lymphoproliferative disorder [None]
  - Cytomegalovirus viraemia [None]
  - Urinary tract infection [None]
  - Leukopenia [None]
  - Lacunar infarction [None]
  - Acute kidney injury [None]
  - Anaemia [None]
  - Hydronephrosis [None]
  - Hypoxia [None]
  - Delirium [None]
  - Pulmonary oedema [None]
  - Cerebrovascular accident [None]
  - Pyelonephritis [None]
  - Traumatic liver injury [None]

NARRATIVE: CASE EVENT DATE: 20240520
